FAERS Safety Report 4511188-6 (Version None)
Quarter: 2004Q4

REPORT INFORMATION
  Report Type: 
  Country: None (occurrence: None)
  Receive Date: 20041128
  Receipt Date: 20041008
  Transmission Date: 20050328
  Serious: Yes (Life-Threatening)
  Sender: FDA-Public Use
  Company Number: PHHO2004CA14267

PATIENT
  Age: 51 Year
  Sex: Female

DRUGS (1)
  1. CLOZARIL [Suspect]
     Dosage: UNKNOWN
     Dates: start: 20041005, end: 20041005

REACTIONS (2)
  - MYOCARDITIS [None]
  - POISONING [None]
